FAERS Safety Report 14085075 (Version 1)
Quarter: 2017Q4

REPORT INFORMATION
  Report Type: Spontaneous
  Country: IT (occurrence: IT)
  Receive Date: 20171013
  Receipt Date: 20171013
  Transmission Date: 20180321
  Serious: Yes (Other)
  Sender: FDA-Public Use
  Company Number: IT-TEVA-816109ACC

PATIENT
  Sex: Male

DRUGS (5)
  1. BENDAMUSTIN HYDROCHLORIDE [Suspect]
     Active Substance: BENDAMUSTINE HYDROCHLORIDE
     Indication: PLASMA CELL MYELOMA
     Dosage: (6 COURSES)
     Route: 042
     Dates: start: 20141001, end: 20150730
  2. DEXAMETHASONE. [Suspect]
     Active Substance: DEXAMETHASONE
     Dosage: (12 COURSES)
     Route: 065
     Dates: start: 201509
  3. POMALIDOMIDE [Suspect]
     Active Substance: POMALIDOMIDE
     Indication: PLASMA CELL MYELOMA
     Dosage: (12 COURSES)
     Route: 065
     Dates: start: 20150909, end: 20160926
  4. DEXAMETHASONE. [Suspect]
     Active Substance: DEXAMETHASONE
     Indication: PLASMA CELL MYELOMA
     Dosage: (6 COURSES)
     Route: 065
     Dates: start: 201410
  5. VELCADE [Suspect]
     Active Substance: BORTEZOMIB
     Indication: PLASMA CELL MYELOMA
     Dosage: (6 COURSES)
     Route: 065
     Dates: start: 201410

REACTIONS (1)
  - Disease progression [Unknown]
